FAERS Safety Report 12404521 (Version 2)
Quarter: 2016Q2

REPORT INFORMATION
  Report Type: Spontaneous
  Country: US (occurrence: US)
  Receive Date: 20160525
  Receipt Date: 20160527
  Transmission Date: 20160815
  Serious: Yes (Other)
  Sender: FDA-Public Use
  Company Number: US-PFIZER INC-2016268091

PATIENT
  Age: 76 Year
  Sex: Female
  Weight: 65 kg

DRUGS (3)
  1. LYRICA [Suspect]
     Active Substance: PREGABALIN
     Dosage: ^50 MG^
     Dates: end: 20160518
  2. LYRICA [Suspect]
     Active Substance: PREGABALIN
     Indication: PAIN
     Dosage: 50MG CAPSULE, EMPTIED 1/2 OF THE CAPSULE
     Dates: start: 20160516
  3. LYRICA [Suspect]
     Active Substance: PREGABALIN
     Dosage: 1/4 OF 50MG CAPSULE
     Dates: start: 20160518, end: 20160518

REACTIONS (6)
  - Product use issue [Unknown]
  - Heart rate increased [Recovered/Resolved]
  - Blood pressure increased [Recovered/Resolved]
  - Blood pressure decreased [Unknown]
  - Intentional product misuse [Unknown]
  - Drug intolerance [Unknown]

NARRATIVE: CASE EVENT DATE: 20160516
